FAERS Safety Report 19882544 (Version 1)
Quarter: 2021Q3

REPORT INFORMATION
  Report Type: Spontaneous
  Country: FR (occurrence: FR)
  Receive Date: 20210924
  Receipt Date: 20210924
  Transmission Date: 20211014
  Serious: Yes (Other)
  Sender: FDA-Public Use
  Company Number: FR-BIOMARINAP-FR-2021-138677

PATIENT
  Sex: Female

DRUGS (1)
  1. BRINEURA [Suspect]
     Active Substance: CERLIPONASE ALFA
     Indication: NEURONAL CEROID LIPOFUSCINOSIS
     Dosage: 300, UNK, QOW
     Route: 020
     Dates: start: 20210114

REACTIONS (2)
  - General physical health deterioration [Unknown]
  - Device related infection [Unknown]

NARRATIVE: CASE EVENT DATE: 20210921
